FAERS Safety Report 25517868 (Version 2)
Quarter: 2025Q3

REPORT INFORMATION
  Report Type: Spontaneous
  Country: US (occurrence: US)
  Receive Date: 20250704
  Receipt Date: 20250810
  Transmission Date: 20251020
  Serious: No
  Sender: ALEXION PHARMACEUTICALS
  Company Number: US-AstraZeneca-CH-00900581AP

PATIENT
  Age: 84 Year
  Sex: Female

DRUGS (1)
  1. BREZTRI [Suspect]
     Active Substance: BUDESONIDE\FORMOTEROL\GLYCOPYRROLATE
     Indication: Emphysema
     Dosage: 2 DOSAGE FORM, BID
     Route: 065
     Dates: start: 20250428

REACTIONS (5)
  - Product use issue [Unknown]
  - Product dose omission issue [Unknown]
  - Dyspnoea [Unknown]
  - Therapy change [Unknown]
  - Taste disorder [Unknown]
